FAERS Safety Report 13428709 (Version 1)
Quarter: 2017Q2

REPORT INFORMATION
  Report Type: Spontaneous
  Country: FR (occurrence: FR)
  Receive Date: 20170411
  Receipt Date: 20170411
  Transmission Date: 20170830
  Serious: Yes (Death)
  Sender: FDA-Public Use
  Company Number: FR-BAYER-2017-063558

PATIENT
  Age: 29 Year
  Sex: Female

DRUGS (8)
  1. CONTRAMAL [Suspect]
     Active Substance: TRAMADOL HYDROCHLORIDE
     Dosage: 60 TABLETS OF CONTRAMAL SR 200 MG
     Route: 048
     Dates: start: 20170316, end: 20170316
  2. DESLORATADINE. [Concomitant]
     Active Substance: DESLORATADINE
     Dosage: 15 DF, ONCE
  3. PREDNISOLONE. [Concomitant]
     Active Substance: PREDNISOLONE
     Dosage: 20 DF, ONCE
  4. CIFLOX 500 MG [Suspect]
     Active Substance: CIPROFLOXACIN
     Dosage: 12 TABLETS OF CIFLOX 500 MG
     Route: 048
     Dates: start: 20170316, end: 20170316
  5. IBUPROFEN. [Suspect]
     Active Substance: IBUPROFEN
     Dosage: 30 TABLETS OF IBUPROFEN 400 MG
     Route: 048
     Dates: start: 20170316, end: 20170316
  6. METFORMIN [Suspect]
     Active Substance: METFORMIN HYDROCHLORIDE
     Dosage: 75 TABLETS OF METFORMIN 1 G
     Route: 048
     Dates: start: 20170316, end: 20170316
  7. RILMENIDINE [Concomitant]
     Active Substance: RILMENIDINE
     Dosage: 60 TABLETS OF RILMENIDINE 1 MG
  8. DAFALGAN [Suspect]
     Active Substance: ACETAMINOPHEN
     Dosage: ONE BOX OF DAFALGAN 1 G
     Route: 048
     Dates: start: 20170316, end: 20170316

REACTIONS (3)
  - Lactic acidosis [Fatal]
  - Coma [Fatal]
  - Multiple organ dysfunction syndrome [Fatal]

NARRATIVE: CASE EVENT DATE: 201703
